FAERS Safety Report 7417066-7 (Version None)
Quarter: 2011Q2

REPORT INFORMATION
  Report Type: 
  Country: None (occurrence: None)
  Receive Date: 20110415
  Receipt Date: 20110330
  Transmission Date: 20111010
  Serious: Yes (Death, Other)
  Sender: FDA-Public Use
  Company Number: US-BAYER-200934336NA

PATIENT
  Age: 67 Year
  Sex: Male
  Weight: 86 kg

DRUGS (17)
  1. HEPARIN [Concomitant]
     Dosage: 26000 UNITS
     Route: 042
     Dates: start: 20030219
  2. RED BLOOD CELLS [Concomitant]
     Dosage: 4 UNITS
     Route: 042
     Dates: start: 20030219, end: 20030219
  3. MANNITOL [Concomitant]
     Dosage: 12.5 GRAMS
     Route: 042
     Dates: start: 20030219, end: 20030219
  4. ISOVUE-128 [Concomitant]
     Indication: CATHETERISATION CARDIAC
     Dosage: 100 CC
     Route: 013
     Dates: start: 20030219, end: 20030219
  5. PLASMALYTE [GLUCOSE,POTASSIUM CHLORIDE] [Concomitant]
     Dosage: 1500 ML
     Route: 042
     Dates: start: 20030219, end: 20030219
  6. DOPAMINE HCL [Concomitant]
     Dosage: TITRATE
     Route: 042
     Dates: start: 20030219
  7. INSULIN [Concomitant]
     Dosage: UNK
     Route: 042
     Dates: start: 20030219
  8. TRASYLOL [Suspect]
     Indication: CORONARY ARTERY BYPASS
     Dosage: 200 CC INTRAVENOUS X 2, 200 CC TO PUMP PRIME
     Dates: start: 20030219, end: 20030219
  9. LEVOPHED [Concomitant]
     Indication: HYPOTENSION
     Dosage: TITRATED
     Route: 042
     Dates: start: 20030219
  10. PLATELETS [Concomitant]
     Dosage: 224 CC
     Route: 042
     Dates: start: 20030219, end: 20030219
  11. ANCEF [Concomitant]
     Dosage: 2GM/1GM/1GM
     Route: 042
     Dates: start: 20030219
  12. REOPRO [Concomitant]
     Dosage: UNK
     Route: 042
     Dates: start: 20030219, end: 20030219
  13. HEPARIN [Concomitant]
     Dosage: 10000 UNITS
     Route: 042
     Dates: start: 20030219, end: 20030219
  14. LOVENOX [Concomitant]
     Dosage: 85 MG X 1
     Route: 058
     Dates: start: 20030218, end: 20030218
  15. LOPRESSOR [Concomitant]
     Dosage: 5 MG X 4
     Route: 042
     Dates: start: 20030218, end: 20030218
  16. TELMISARTAN [Concomitant]
     Dosage: LONG-TERM USE
     Route: 048
  17. ACETYLSALICYLIC ACID SRT [Concomitant]
     Dosage: 81 MG X 4
     Route: 048
     Dates: start: 20030218, end: 20030218

REACTIONS (14)
  - EMOTIONAL DISTRESS [None]
  - FEAR [None]
  - MULTI-ORGAN FAILURE [None]
  - ANHEDONIA [None]
  - DISABILITY [None]
  - RENAL INJURY [None]
  - DEPRESSION [None]
  - NERVOUSNESS [None]
  - PAIN [None]
  - UNEVALUABLE EVENT [None]
  - DEATH [None]
  - RENAL FAILURE [None]
  - INJURY [None]
  - ANXIETY [None]
